FAERS Safety Report 6103056-3 (Version None)
Quarter: 2009Q1

REPORT INFORMATION
  Report Type: 
  Country: None (occurrence: None)
  Receive Date: 20090305
  Receipt Date: 20090302
  Transmission Date: 20090719
  Serious: Yes (Other)
  Sender: FDA-Public Use
  Company Number: DE-BAYER-200826863GPV

PATIENT
  Age: 63 Year
  Sex: Male
  Weight: 45 kg

DRUGS (5)
  1. CIPROFLOXACIN HCL [Suspect]
     Indication: PROPHYLAXIS
     Dosage: TOTAL DAILY DOSE: 400 MG  UNIT DOSE: 200 MG
     Route: 042
     Dates: start: 20080826, end: 20080831
  2. METRONIDAZOLE [Concomitant]
     Indication: PROPHYLAXIS
     Dosage: TOTAL DAILY DOSE: 1.5 G
     Route: 042
     Dates: start: 20080826, end: 20080831
  3. PANTOZOL [Concomitant]
     Indication: PROPHYLAXIS
     Route: 042
     Dates: start: 20080826
  4. METOCLOPRAMIDE [Concomitant]
     Indication: DRUG USE FOR UNKNOWN INDICATION
     Dosage: TOTAL DAILY DOSE: 30 MG
     Route: 065
     Dates: start: 20080826
  5. KONAKION [Concomitant]
     Indication: DRUG USE FOR UNKNOWN INDICATION
     Dosage: TOTAL DAILY DOSE: 20 MG
     Route: 042
     Dates: start: 20080826

REACTIONS (5)
  - ACUTE PSYCHOSIS [None]
  - DELUSIONAL DISORDER, UNSPECIFIED TYPE [None]
  - HALLUCINATION [None]
  - MENTAL DISORDER DUE TO A GENERAL MEDICAL CONDITION [None]
  - NO ADVERSE EVENT [None]
